FAERS Safety Report 10844093 (Version 5)
Quarter: 2015Q2

REPORT INFORMATION
  Report Type: Spontaneous
  Country: US (occurrence: US)
  Receive Date: 20150220
  Receipt Date: 20150401
  Transmission Date: 20150821
  Serious: Yes (Hospitalization)
  Sender: FDA-Public Use
  Company Number: US-UNITED THERAPEUTICS-UNT-2015-001655

PATIENT
  Age: 47 Year
  Sex: Female
  Weight: 92.52 kg

DRUGS (4)
  1. REMODULIN [Suspect]
     Active Substance: TREPROSTINIL
     Dosage: 0.041 ?G/KG, CONTINUING
     Route: 041
  2. TRACLEER [Concomitant]
     Active Substance: BOSENTAN\BOSENTAN MONOHYDRATE
     Indication: PRODUCT USED FOR UNKNOWN INDICATION
  3. ADCIRCA [Concomitant]
     Active Substance: TADALAFIL
     Indication: PRODUCT USED FOR UNKNOWN INDICATION
  4. REMODULIN [Suspect]
     Active Substance: TREPROSTINIL
     Indication: PULMONARY ARTERIAL HYPERTENSION
     Dosage: 0.041 ?G/KG, CONTINUING
     Route: 041
     Dates: start: 20140117

REACTIONS (11)
  - Dizziness [Unknown]
  - Heart rate increased [Unknown]
  - Thrombosis [Unknown]
  - Pyrexia [Unknown]
  - Cough [Unknown]
  - Device related infection [Unknown]
  - Infection [Unknown]
  - Incorrect dose administered [Unknown]
  - Feeling hot [Unknown]
  - Thrombosis in device [Unknown]
  - Dyspnoea [Unknown]

NARRATIVE: CASE EVENT DATE: 201502
